FAERS Safety Report 15059460 (Version 1)
Quarter: 2018Q2

REPORT INFORMATION
  Report Type: Spontaneous
  Country: AT (occurrence: AT)
  Receive Date: 20180625
  Receipt Date: 20180625
  Transmission Date: 20180711
  Serious: Yes (Other)
  Sender: FDA-Public Use
  Company Number: AT-JNJFOC-20180629965

PATIENT
  Age: 61 Year
  Sex: Male

DRUGS (7)
  1. NOVALGIN [Concomitant]
     Route: 065
  2. OLEOVIT-D3 [Concomitant]
     Route: 065
  3. LISINOPRIL. [Concomitant]
     Active Substance: LISINOPRIL
     Route: 065
  4. TAMSULOSIN [Concomitant]
     Active Substance: TAMSULOSIN
     Route: 065
  5. MEXALEN [Concomitant]
     Active Substance: ACETAMINOPHEN
     Route: 065
  6. XARELTO [Suspect]
     Active Substance: RIVAROXABAN
     Indication: THROMBOSIS PROPHYLAXIS
     Route: 048
     Dates: start: 20171009
  7. MAGNESIUM VERLA [Concomitant]
     Active Substance: MAGNESIUM
     Route: 065

REACTIONS (1)
  - Thrombosis [Unknown]

NARRATIVE: CASE EVENT DATE: 20171013
